FAERS Safety Report 4393956-7 (Version None)
Quarter: 2004Q3

REPORT INFORMATION
  Report Type: 
  Country: None (occurrence: None)
  Receive Date: 20040701
  Receipt Date: 20040618
  Transmission Date: 20050211
  Serious: Yes (Death)
  Sender: FDA-Public Use
  Company Number: NO-JNJFOC-20040604695

PATIENT
  Age: 82 Year
  Sex: Female

DRUGS (9)
  1. RISPERDAL [Suspect]
     Indication: DEMENTIA
     Dosage: 0.5 MG, 1 IN 1 DAY, ORAL
     Route: 048
  2. WARFARIN (WARFARIN) [Suspect]
     Indication: ATRIAL FIBRILLATION
     Dosage: 27.5 MG, IN 1 WEEK
  3. CARBAMAZEPINE [Concomitant]
  4. RANITIDINE [Concomitant]
  5. BUMETANID (BUMETANIDE) [Concomitant]
  6. HYDROXIZIN (HYDROXYZINE) [Concomitant]
  7. OXAZEPAM [Concomitant]
  8. SPIRONOLAKTION (SPIRONOLACTONE) [Concomitant]
  9. CETIRIZINE 9CETIRIZINE) [Concomitant]

REACTIONS (1)
  - HAEMORRHAGIC CEREBRAL INFARCTION [None]
